FAERS Safety Report 9272200 (Version 1)
Quarter: 2013Q2

REPORT INFORMATION
  Report Type: Spontaneous
  Country: US (occurrence: US)
  Receive Date: 20130506
  Receipt Date: 20130506
  Transmission Date: 20140414
  Serious: No
  Sender: FDA-Public Use
  Company Number: US-ASTRAZENECA-2013SE08541

PATIENT
  Age: 79 Year
  Sex: Male

DRUGS (5)
  1. PRILOSEC OTC [Suspect]
     Route: 048
     Dates: start: 20130108, end: 20130121
  2. DILTIZEM [Concomitant]
     Dosage: UNKNOWN
  3. BABY ASPIRIN [Concomitant]
     Dosage: UNKNOWN
  4. DOXAZOSIN [Concomitant]
     Dosage: UNKNOWN
  5. OSTEO-BI-FLEX [Concomitant]
     Dosage: UNKNOWN

REACTIONS (1)
  - Dyspepsia [Recovered/Resolved]
